FAERS Safety Report 4891987-1 (Version None)
Quarter: 2006Q1

REPORT INFORMATION
  Report Type: 
  Country: None (occurrence: None)
  Receive Date: 20060124
  Receipt Date: 20060124
  Transmission Date: 20060701
  Serious: Yes (Life-Threatening, Hospitalization)
  Sender: FDA-Public Use
  Company Number: None

PATIENT
  Age: 60 Year
  Sex: Male
  Weight: 91 kg

DRUGS (1)
  1. LABETALOL 20 MG [Suspect]
     Dosage: IV X 2 DOSES
     Route: 042

REACTIONS (2)
  - BLOOD PRESSURE INCREASED [None]
  - RESPIRATORY ARREST [None]
